FAERS Safety Report 8452682-5 (Version None)
Quarter: 2012Q2

REPORT INFORMATION
  Report Type: 
  Country: None (occurrence: None)
  Receive Date: 20120620
  Receipt Date: 20120504
  Transmission Date: 20120825
  Serious: No
  Sender: FDA-Public Use
  Company Number: US-VERTEX PHARMACEUTICALS INC.-AE-2012-005821

PATIENT
  Sex: Female
  Weight: 59.02 kg

DRUGS (11)
  1. METFORMIN HCL [Concomitant]
     Indication: DIABETES MELLITUS
     Route: 048
  2. OYESTER SHELL CALCIUM WITH VITAMIN D [Concomitant]
     Route: 048
  3. NORCO [Concomitant]
     Indication: PAIN
     Route: 048
  4. PLAQUENIL [Concomitant]
     Route: 048
  5. INCIVEK [Suspect]
     Indication: HEPATITIS C
     Route: 048
     Dates: start: 20120421, end: 20120422
  6. PEGASYS [Concomitant]
     Indication: HEPATITIS C
     Route: 058
     Dates: start: 20120420
  7. NOVOLOG MIX 70/30 [Concomitant]
     Indication: DIABETES MELLITUS
     Route: 058
  8. RIBAVIRIN [Concomitant]
     Route: 048
     Dates: start: 20120423
  9. PERIACTIN [Concomitant]
     Route: 048
  10. INCIVEK [Suspect]
     Route: 048
     Dates: start: 20120423
  11. RIBAVIRIN [Concomitant]
     Indication: HEPATITIS C
     Route: 048
     Dates: start: 20120421

REACTIONS (1)
  - VOMITING [None]
